FAERS Safety Report 5585271-0 (Version None)
Quarter: 2008Q1

REPORT INFORMATION
  Report Type: 
  Country: None (occurrence: None)
  Receive Date: 20080108
  Receipt Date: 20080108
  Transmission Date: 20080703
  Serious: Yes (Other)
  Sender: FDA-Public Use
  Company Number: None

PATIENT
  Age: 54 Year
  Sex: Female

DRUGS (6)
  1. MOBIC [Suspect]
     Dates: start: 20050415, end: 20060415
  2. PRAVACHOL [Suspect]
     Dates: start: 20050501, end: 20060416
  3. OSCAL [Concomitant]
  4. FLAX COMPLETE [Concomitant]
  5. EMERGEN-C (A VITAMIN C SUPPLEMENT) [Concomitant]
  6. MILK THISTLE [Concomitant]

REACTIONS (10)
  - ALANINE AMINOTRANSFERASE INCREASED [None]
  - ANTIMITOCHONDRIAL ANTIBODY POSITIVE [None]
  - ANTINUCLEAR ANTIBODY POSITIVE [None]
  - ASPARTATE AMINOTRANSFERASE INCREASED [None]
  - AUTOANTIBODY POSITIVE [None]
  - BIOPSY LIVER ABNORMAL [None]
  - HEPATIC ENZYME ABNORMAL [None]
  - HYPERGAMMAGLOBULINAEMIA [None]
  - LIVER INJURY [None]
  - PROTEIN TOTAL INCREASED [None]
